FAERS Safety Report 7069481-1 (Version None)
Quarter: 2010Q4

REPORT INFORMATION
  Report Type: 
  Country: None (occurrence: None)
  Receive Date: 20101028
  Receipt Date: 20100121
  Transmission Date: 20110411
  Serious: No
  Sender: FDA-Public Use
  Company Number: US-WYE-H12712309

PATIENT
  Age: 38 Year
  Sex: Female
  Weight: 61.29 kg

DRUGS (2)
  1. ADVIL COLD AND SINUS [Suspect]
     Indication: NASOPHARYNGITIS
     Dosage: 2 LIQUI-GELS AS NEEDED
     Route: 048
     Dates: start: 20091212, end: 20091217
  2. ADVIL COLD AND SINUS [Suspect]
     Indication: HEADACHE

REACTIONS (3)
  - DRUG INEFFECTIVE [None]
  - DYSPHAGIA [None]
  - RETCHING [None]
